FAERS Safety Report 5315503-5 (Version None)
Quarter: 2007Q2

REPORT INFORMATION
  Report Type: 
  Country: None (occurrence: None)
  Receive Date: 20070503
  Receipt Date: 20070424
  Transmission Date: 20071010
  Serious: Yes (Death, Life-Threatening, Other)
  Sender: FDA-Public Use
  Company Number: GB-JNJFOC-20070405765

PATIENT
  Sex: Female
  Weight: 82 kg

DRUGS (14)
  1. REMICADE [Suspect]
     Route: 042
  2. REMICADE [Suspect]
     Indication: PSORIATIC ARTHROPATHY
     Route: 042
  3. METHOTREXATE [Concomitant]
  4. AMLODIPINE [Concomitant]
  5. ATENOLOL [Concomitant]
  6. DOMPERIDONE [Concomitant]
  7. FOLIC ACID [Concomitant]
  8. FRUMIL [Concomitant]
  9. HUMULIN R [Concomitant]
  10. VITAMIN CAP [Concomitant]
  11. RANITIDINE [Concomitant]
  12. TRAMADOL HCL [Concomitant]
  13. VITAMIN B-12 [Concomitant]
  14. ISMIN [Concomitant]

REACTIONS (4)
  - ANGIOPATHY [None]
  - CARDIAC FAILURE [None]
  - DIABETES MELLITUS NON-INSULIN-DEPENDENT [None]
  - MYOCARDIAL INFARCTION [None]
